FAERS Safety Report 21713636 (Version 1)
Quarter: 2022Q4

REPORT INFORMATION
  Report Type: Spontaneous
  Country: US (occurrence: US)
  Receive Date: 20221212
  Receipt Date: 20221212
  Transmission Date: 20230113
  Serious: No
  Sender: FDA-Public Use
  Company Number: US-AMERICAN REGENT INC-2022001843

PATIENT
  Age: 47 Year
  Sex: Female
  Weight: 83.9 kg

DRUGS (41)
  1. VENOFER [Suspect]
     Active Substance: IRON SUCROSE
     Indication: Microcytic anaemia
     Dosage: 100 MILLIGRAM
     Route: 042
     Dates: start: 20160529, end: 20160529
  2. VENOFER [Suspect]
     Active Substance: IRON SUCROSE
     Indication: Iron deficiency anaemia
     Dosage: 100 MILLIGRAM IN 0.9 % SODIUM CHLORIDE 100 ML
     Route: 042
     Dates: start: 20160530, end: 20160530
  3. VENOFER [Suspect]
     Active Substance: IRON SUCROSE
     Dosage: 100 MILLIGRAM IN 0.9 % SODIUM CHLORIDE 100 ML
     Route: 042
     Dates: start: 20160530, end: 20160530
  4. VENOFER [Suspect]
     Active Substance: IRON SUCROSE
     Dosage: 200 MILLIGRAM IN 0.9 % SODIUM CHLORIDE 100 ML
     Route: 042
     Dates: start: 20160530, end: 20160530
  5. VENOFER [Suspect]
     Active Substance: IRON SUCROSE
     Dosage: 300 MILLIGRAM IN 0.9 % SODIUM CHLORIDE 250 ML
     Route: 042
     Dates: start: 20160531, end: 20160531
  6. VENOFER [Suspect]
     Active Substance: IRON SUCROSE
     Dosage: 100 MILLIGRAM IN 0.9 % SODIUM CHLORIDE 100 ML
     Route: 042
     Dates: start: 20160919, end: 20160919
  7. VENOFER [Suspect]
     Active Substance: IRON SUCROSE
     Dosage: 100 MILLIGRAM IN 0.9 % SODIUM CHLORIDE 100 ML
     Route: 042
     Dates: start: 20160920, end: 20160920
  8. VENOFER [Suspect]
     Active Substance: IRON SUCROSE
     Dosage: 100 MILLIGRAM IN 0.9 % SODIUM CHLORIDE 100 ML
     Route: 042
     Dates: start: 20160921, end: 20160921
  9. VENOFER [Suspect]
     Active Substance: IRON SUCROSE
     Dosage: 200 MILLIGRAM IN 0.9 % SODIUM CHLORIDE 100 ML
     Route: 042
     Dates: start: 20170707, end: 20170707
  10. VENOFER [Suspect]
     Active Substance: IRON SUCROSE
     Dosage: 200 MILLIGRAM IN 0.9 % SODIUM CHLORIDE 100 ML
     Route: 042
     Dates: start: 20170714, end: 20170714
  11. VENOFER [Suspect]
     Active Substance: IRON SUCROSE
     Dosage: 200 MILLIGRAM IN 0.9 % SODIUM CHLORIDE 100 ML
     Route: 042
     Dates: start: 20170721, end: 20170721
  12. VENOFER [Suspect]
     Active Substance: IRON SUCROSE
     Dosage: 200 MILLIGRAM IN 0.9 % SODIUM CHLORIDE 100 ML
     Route: 042
     Dates: start: 20170811, end: 20170811
  13. VENOFER [Suspect]
     Active Substance: IRON SUCROSE
     Dosage: 200 MILLIGRAM IN 0.9 % SODIUM CHLORIDE 100 ML
     Route: 042
     Dates: start: 20170914, end: 20170914
  14. BEANO [Concomitant]
     Active Substance: ASPERGILLUS NIGER .ALPHA.-GALACTOSIDASE
     Indication: Flatulence
     Dosage: 300 UNITS (2 TABLET) PRN WITH MEALS
     Route: 048
     Dates: start: 20160530, end: 20160531
  15. ELAVIL [Concomitant]
     Active Substance: AMITRIPTYLINE HYDROCHLORIDE
     Indication: Product used for unknown indication
     Dosage: 50 MILLIGRAM NIGHTLY AT BEDTIME
     Route: 048
     Dates: start: 20160530, end: 20160530
  16. OSCAL [CALCIUM CARBONATE] [Concomitant]
     Indication: Product used for unknown indication
     Dosage: 500 MILLIGRAM TWO TIMES DAILY WITH MEALS
     Route: 048
     Dates: start: 20160530, end: 20160531
  17. CALCIUM GLUCONATE [Concomitant]
     Active Substance: CALCIUM GLUCONATE
     Indication: Product used for unknown indication
     Dosage: 1 GRAM IN 0.9% SODIUM CHLORIDE 100 ML
     Route: 042
     Dates: start: 20160531, end: 20160531
  18. CELEXA [Concomitant]
     Active Substance: CITALOPRAM HYDROBROMIDE
     Indication: Product used for unknown indication
     Dosage: 20 MILLIGRAM DAILY
     Route: 048
     Dates: start: 20160530, end: 20160531
  19. VITAMIN B12 [Concomitant]
     Active Substance: CYANOCOBALAMIN
     Indication: Product used for unknown indication
     Dosage: 100 MICROGRAM DAILY
     Route: 048
     Dates: start: 20160531, end: 20160531
  20. BENADRYL [Concomitant]
     Active Substance: DIPHENHYDRAMINE HYDROCHLORIDE
     Indication: Pruritus
     Dosage: 50 MILLIGRAM EVERY 6 HOURS PRN
     Route: 048
     Dates: start: 20160530, end: 20160531
  21. BENADRYL [Concomitant]
     Active Substance: DIPHENHYDRAMINE HYDROCHLORIDE
     Indication: Sleep disorder
  22. BENADRYL [Concomitant]
     Active Substance: DIPHENHYDRAMINE HYDROCHLORIDE
     Indication: Premedication
     Dosage: UNK, SINGLE
     Route: 042
     Dates: start: 20160529, end: 20160529
  23. BENADRYL [Concomitant]
     Active Substance: DIPHENHYDRAMINE HYDROCHLORIDE
     Dosage: 50 MILLIGRAM ONCE
     Route: 042
     Dates: start: 20160530, end: 20160530
  24. BENADRYL [Concomitant]
     Active Substance: DIPHENHYDRAMINE HYDROCHLORIDE
     Dosage: 25 MILLIGRAM IN 0.9 % SODIUM CHLORIDE 50 ML
     Route: 042
     Dates: start: 20170707, end: 20170707
  25. BENADRYL [Concomitant]
     Active Substance: DIPHENHYDRAMINE HYDROCHLORIDE
     Dosage: 25 MILLIGRAM IN 0.9 % SODIUM CHLORIDE 50 ML
     Route: 042
     Dates: start: 20170714, end: 20170714
  26. BENADRYL [Concomitant]
     Active Substance: DIPHENHYDRAMINE HYDROCHLORIDE
     Dosage: 25 MILLIGRAM IN 0.9 % SODIUM CHLORIDE 50 ML
     Route: 042
     Dates: start: 20170721, end: 20170721
  27. BENADRYL [Concomitant]
     Active Substance: DIPHENHYDRAMINE HYDROCHLORIDE
     Dosage: 25 MILLIGRAM IN 0.9 % SODIUM CHLORIDE 50 ML
     Route: 042
     Dates: start: 20170811, end: 20170811
  28. BENADRYL [Concomitant]
     Active Substance: DIPHENHYDRAMINE HYDROCHLORIDE
     Dosage: 25 MILLIGRAM IN 0.9 % SODIUM CHLORIDE 50 ML
     Route: 042
     Dates: start: 20170914, end: 20170914
  29. CORTEF [Concomitant]
     Active Substance: HYDROCORTISONE
     Indication: Product used for unknown indication
     Dosage: 20 MILLIGRAM TWO TIMES DAILY
     Route: 048
     Dates: start: 20160530, end: 20160531
  30. SOLU-CORTEF [Concomitant]
     Active Substance: HYDROCORTISONE SODIUM SUCCINATE
     Indication: Product used for unknown indication
     Dosage: 100 MILLIGRAM ONCE
     Route: 042
     Dates: start: 20160530, end: 20160530
  31. PREVACID [Concomitant]
     Active Substance: LANSOPRAZOLE
     Indication: Product used for unknown indication
     Dosage: 30 MILLIGRAM DAILY
     Route: 048
     Dates: start: 20160531, end: 20160531
  32. SYNTHROID [Concomitant]
     Active Substance: LEVOTHYROXINE SODIUM
     Indication: Product used for unknown indication
     Dosage: 125 MICROGRAM DAILY
     Route: 048
     Dates: start: 20160530, end: 20160531
  33. DOLOPHINE [Concomitant]
     Active Substance: METHADONE HYDROCHLORIDE
     Indication: Pain
     Dosage: 10 MILLIGRAM EVERY 12 HOURS PRN
     Route: 048
     Dates: start: 20160530, end: 20160531
  34. VITAMINS [Concomitant]
     Active Substance: VITAMINS
     Indication: Product used for unknown indication
     Dosage: 10 MILLILITER IN 0.9 % SODIUM CHLORIDE 500 ML DAILY
     Route: 042
     Dates: start: 20160530, end: 20160531
  35. OXYCODONE [Concomitant]
     Active Substance: OXYCODONE
     Indication: Pain
     Dosage: 5 MILLIGRAM ONCE
     Route: 048
     Dates: start: 20160530, end: 20160530
  36. OXYCODONE [Concomitant]
     Active Substance: OXYCODONE
     Dosage: 5 MILLIGRAM EVERY 6 HOURS PRN
     Route: 048
     Dates: start: 20160531, end: 20160531
  37. PERCOCET [Concomitant]
     Active Substance: ACETAMINOPHEN\OXYCODONE HYDROCHLORIDE
     Indication: Pain
     Dosage: 1 TABLET ONCE
     Route: 048
     Dates: start: 20160530, end: 20160530
  38. PERCOCET [Concomitant]
     Active Substance: ACETAMINOPHEN\OXYCODONE HYDROCHLORIDE
     Dosage: 1 TABLET EVERY 6 HOURS PRN
     Route: 048
     Dates: start: 20160531, end: 20160531
  39. PROTONIX [Concomitant]
     Active Substance: PANTOPRAZOLE SODIUM
     Indication: Product used for unknown indication
     Dosage: 40 MILLIGRAM DAILY
     Route: 042
     Dates: start: 20160530, end: 20160530
  40. PHENERGAN [Concomitant]
     Active Substance: PROMETHAZINE HYDROCHLORIDE
     Indication: Nausea
     Dosage: 12.5 MILLIGRAM EVERY 4 HOURS PRN
     Route: 048
     Dates: start: 20160530, end: 20160531
  41. AMBIEN [Concomitant]
     Active Substance: ZOLPIDEM TARTRATE
     Indication: Sleep disorder
     Dosage: 5 MILLIGRAM NIGHTLY AT BEDTIME PRN
     Route: 048
     Dates: start: 20160530, end: 20160530

REACTIONS (3)
  - Skin burning sensation [Unknown]
  - Skin irritation [Unknown]
  - Off label use [Unknown]

NARRATIVE: CASE EVENT DATE: 20160529
